FAERS Safety Report 9484200 (Version 1)
Quarter: 2013Q3

REPORT INFORMATION
  Report Type: Report from Study
  Country: CA (occurrence: CA)
  Receive Date: 20130828
  Receipt Date: 20130828
  Transmission Date: 20140515
  Serious: Yes (Hospitalization, Other)
  Sender: FDA-Public Use
  Company Number: CA-ABBOTT-13P-028-1138060-00

PATIENT
  Age: 22 Year
  Sex: Male
  Weight: 68.1 kg

DRUGS (2)
  1. HUMIRA [Suspect]
     Indication: ANKYLOSING SPONDYLITIS
     Route: 058
     Dates: start: 20120725, end: 20130804
  2. BISOPROLOL [Concomitant]
     Indication: ARRHYTHMIA
     Route: 048
     Dates: start: 2011

REACTIONS (10)
  - Loss of consciousness [Recovered/Resolved]
  - Paralysis [Unknown]
  - Arrhythmia [Recovering/Resolving]
  - Malaise [Recovering/Resolving]
  - Procedural pain [Unknown]
  - Drug hypersensitivity [Unknown]
  - Drug hypersensitivity [Unknown]
  - Muscle twitching [Unknown]
  - Insomnia [Not Recovered/Not Resolved]
  - Depression [Unknown]
